FAERS Safety Report 14287952 (Version 1)
Quarter: 2017Q4

REPORT INFORMATION
  Report Type: Spontaneous
  Country: US (occurrence: US)
  Receive Date: 20171214
  Receipt Date: 20171214
  Transmission Date: 20180321
  Serious: No
  Sender: FDA-Public Use
  Company Number: US-PFIZER INC-2017526510

PATIENT
  Sex: Female

DRUGS (1)
  1. ATROPINE SULFATE/DIPHENOXYLATE HYDROCHLORIDE [Suspect]
     Active Substance: ATROPINE SULFATE\DIPHENOXYLATE HYDROCHLORIDE
     Dosage: 1 DF, 1X/DAY (ONLY TAKES ONE TABLET AT NIGHT)

REACTIONS (10)
  - Feeling of body temperature change [Unknown]
  - Carpal tunnel syndrome [Unknown]
  - Malaise [Unknown]
  - Speech disorder [Unknown]
  - Headache [Unknown]
  - Hypoaesthesia [Unknown]
  - Gait disturbance [Unknown]
  - Cardiac disorder [Unknown]
  - Sleep disorder [Unknown]
  - Peripheral swelling [Unknown]
